FAERS Safety Report 8990668 (Version 1)
Quarter: 2012Q4

REPORT INFORMATION
  Report Type: 
  Country: GB (occurrence: GB)
  Receive Date: 20121228
  Receipt Date: 20121228
  Transmission Date: 20130627
  Serious: Yes (Other)
  Sender: FDA-Public Use
  Company Number: GB-JNJFOC-20121209811

PATIENT
  Sex: Male

DRUGS (1)
  1. XEPLION [Suspect]
     Indication: PRODUCT USED FOR UNKNOWN INDICATION
     Route: 030

REACTIONS (7)
  - Depression [Unknown]
  - Dyskinesia [Unknown]
  - Restlessness [Unknown]
  - Lethargy [Unknown]
  - Disturbance in attention [Unknown]
  - Musculoskeletal stiffness [Unknown]
  - Irritability [Unknown]
